FAERS Safety Report 16144006 (Version 2)
Quarter: 2019Q2

REPORT INFORMATION
  Report Type: Report from Study
  Country: US (occurrence: US)
  Receive Date: 20190401
  Receipt Date: 20190416
  Transmission Date: 20190711
  Serious: Yes (Hospitalization)
  Sender: FDA-Public Use
  Company Number: US-ACTELION-A-NJ2017-164748

PATIENT
  Age: 79 Year
  Sex: Female
  Weight: 82.09 kg

DRUGS (21)
  1. UPTRAVI [Suspect]
     Active Substance: SELEXIPAG
     Dosage: 1200 UNK
     Route: 048
  2. DIGOXIN. [Concomitant]
     Active Substance: DIGOXIN
     Dosage: UNK
     Dates: start: 20140205
  3. UPTRAVI [Suspect]
     Active Substance: SELEXIPAG
     Dosage: 1400 UNK
     Route: 048
     Dates: start: 20190311
  4. DILTIAZEM. [Concomitant]
     Active Substance: DILTIAZEM
     Dosage: UNK
     Dates: start: 20140207
  5. FUROSEMIDE. [Concomitant]
     Active Substance: FUROSEMIDE
     Dosage: UNK
     Dates: start: 20161126
  6. ADVAIR HFA [Concomitant]
     Active Substance: FLUTICASONE PROPIONATE\SALMETEROL XINAFOATE
     Dosage: UNK
     Dates: start: 20140205
  7. NASONEX [Concomitant]
     Active Substance: MOMETASONE FUROATE
     Dosage: UNK
     Dates: start: 20160831
  8. PROBIOTIC [Concomitant]
     Active Substance: PROBIOTICS NOS
     Dosage: UNK
     Dates: start: 20130214
  9. PREVACID [Concomitant]
     Active Substance: LANSOPRAZOLE
     Dosage: UNK
     Dates: start: 20120416
  10. UPTRAVI [Suspect]
     Active Substance: SELEXIPAG
     Dosage: 600 MCG, BID
     Route: 048
     Dates: start: 20171106
  11. GLUCOSAMINE [Concomitant]
     Active Substance: GLUCOSAMINE
     Dosage: UNK
     Dates: start: 20171019
  12. ALBUTEROL. [Concomitant]
     Active Substance: ALBUTEROL
     Dosage: UNK
     Dates: start: 20161128
  13. ALLOPURINOL. [Concomitant]
     Active Substance: ALLOPURINOL
     Dosage: UNK
     Dates: start: 20160831
  14. SOLU-MEDROL [Suspect]
     Active Substance: METHYLPREDNISOLONE SODIUM SUCCINATE
     Indication: PRODUCT USED FOR UNKNOWN INDICATION
     Dosage: Q 8 HRS.
     Route: 042
  15. SPIRONOLACTONE. [Concomitant]
     Active Substance: SPIRONOLACTONE
  16. GLIMEPIRIDE. [Concomitant]
     Active Substance: GLIMEPIRIDE
     Dosage: UNK
     Dates: start: 20171019
  17. VITAMIN B12 [Concomitant]
     Active Substance: CYANOCOBALAMIN
  18. SINGULAIR [Concomitant]
     Active Substance: MONTELUKAST SODIUM
  19. UPTRAVI [Suspect]
     Active Substance: SELEXIPAG
     Indication: PULMONARY ARTERIAL HYPERTENSION
     Dosage: 400 MCG, BID
     Route: 048
     Dates: start: 20171106
  20. ELIQUIS [Concomitant]
     Active Substance: APIXABAN
  21. FOLIC ACID. [Concomitant]
     Active Substance: FOLIC ACID
     Dosage: UNK
     Dates: start: 20160831

REACTIONS (13)
  - Dyspnoea [Unknown]
  - Tachycardia [Recovered/Resolved with Sequelae]
  - Bronchitis [Recovered/Resolved with Sequelae]
  - Pneumonia [Unknown]
  - Oxygen saturation decreased [Recovered/Resolved with Sequelae]
  - Epistaxis [Unknown]
  - Sputum discoloured [Recovered/Resolved with Sequelae]
  - Productive cough [Recovered/Resolved with Sequelae]
  - Blood glucose increased [Recovered/Resolved with Sequelae]
  - Upper respiratory tract infection [Unknown]
  - Chronic obstructive pulmonary disease [Recovered/Resolved]
  - Urticaria [Unknown]
  - Nervousness [Unknown]

NARRATIVE: CASE EVENT DATE: 201712
